FAERS Safety Report 9275261 (Version 1)
Quarter: 2013Q2

REPORT INFORMATION
  Report Type: Spontaneous
  Country: US (occurrence: None)
  Receive Date: 20130501
  Receipt Date: 20130501
  Transmission Date: 20140414
  Serious: Yes (Other)
  Sender: FDA-Public Use
  Company Number: None

PATIENT
  Age: 65 Year
  Sex: Female
  Weight: 46.27 kg

DRUGS (1)
  1. BACLOFEN 10 MG TABLETS [Suspect]
     Route: 048
     Dates: start: 20121108, end: 20121112

REACTIONS (7)
  - Lethargy [None]
  - Dizziness [None]
  - Fatigue [None]
  - Asthenia [None]
  - Vision blurred [None]
  - Tooth discolouration [None]
  - Tooth injury [None]
